FAERS Safety Report 9210673 (Version 2)
Quarter: 2013Q2

REPORT INFORMATION
  Report Type: Spontaneous
  Country: US (occurrence: US)
  Receive Date: 20130404
  Receipt Date: 20130531
  Transmission Date: 20140414
  Serious: Yes (Hospitalization)
  Sender: FDA-Public Use
  Company Number: US-GLAXOSMITHKLINE-A0856927A

PATIENT
  Sex: Female

DRUGS (5)
  1. ADVAIR [Suspect]
     Indication: ASTHMA
     Dosage: 1PUFF TWICE PER DAY
     Route: 055
  2. ADVAIR [Suspect]
     Indication: ASTHMA
     Route: 055
  3. INSULIN [Concomitant]
  4. WATER PILL [Concomitant]
  5. MULTIVITAMIN LIQUID [Concomitant]

REACTIONS (6)
  - Asthma [Unknown]
  - Dyspnoea [Unknown]
  - Product quality issue [Unknown]
  - Cataract [Not Recovered/Not Resolved]
  - Diabetes mellitus [Not Recovered/Not Resolved]
  - Drug ineffective [Not Recovered/Not Resolved]
